FAERS Safety Report 6706033 (Version 2)
Quarter: 2016Q2

REPORT INFORMATION
  Report Type: Spontaneous
  Country: FR (occurrence: FR)
  Receive Date: 20080722
  Receipt Date: 20160603
  Transmission Date: 20160815
  Serious: Yes (Hospitalization)
  Sender: FDA-Public Use
  Company Number: FR-ELI_LILLY_AND_COMPANY-FR200807001941

PATIENT
  Age: 72 Year
  Sex: Female

DRUGS (13)
  1. MOTILYO [Suspect]
     Active Substance: DOMPERIDONE
     Indication: PRODUCT USED FOR UNKNOWN INDICATION
     Route: 048
  2. DEBRIDAT                           /00465202/ [Suspect]
     Active Substance: TRIMEBUTINE
     Indication: COLITIS
     Dosage: UNK, UNK
     Route: 048
     Dates: start: 20070914, end: 20070924
  3. LASILIX                            /00032601/ [Suspect]
     Active Substance: FUROSEMIDE
     Indication: PRODUCT USED FOR UNKNOWN INDICATION
     Dosage: 1 DF, QD
     Route: 048
  4. AUGMENTIN [Suspect]
     Active Substance: AMOXICILLIN\CLAVULANATE POTASSIUM
     Indication: COLITIS
     Dosage: UNK, UNK
     Dates: start: 20070914, end: 20070924
  5. ZYPREXA [Suspect]
     Active Substance: OLANZAPINE
     Indication: PSYCHOTIC DISORDER
     Dosage: UNK, UNKNOWN
     Route: 048
  6. DEPAKINE                           /00228502/ [Suspect]
     Active Substance: VALPROATE SODIUM
     Indication: EPILEPSY
     Dosage: 1 DF, BID
     Route: 048
  7. IMOVANE [Suspect]
     Active Substance: ZOPICLONE
     Indication: PRODUCT USED FOR UNKNOWN INDICATION
     Route: 048
  8. SINTROM [Suspect]
     Active Substance: ACENOCOUMAROL
     Indication: PULMONARY EMBOLISM
     Dosage: 1/2 DF ALTERNATING WITH 3/4 DF
     Route: 048
  9. ULTRA LEVURA /00243701/ [Suspect]
     Active Substance: YEAST
     Indication: COLITIS
     Dosage: UNK, UNK
     Route: 048
     Dates: start: 20070914, end: 20070924
  10. LEPTICUR [Suspect]
     Active Substance: TROPATEPINE HYDROCHLORIDE
     Indication: PROPHYLAXIS
     Dosage: 10 MG, QD
     Route: 048
  11. TIORFAN [Suspect]
     Active Substance: RACECADOTRIL
     Indication: PRODUCT USED FOR UNKNOWN INDICATION
     Route: 048
  12. DIPROSONE [Suspect]
     Active Substance: BETAMETHASONE DIPROPIONATE
     Indication: PSORIASIS
  13. FORLAX [Suspect]
     Active Substance: POLYETHYLENE GLYCOL 4000
     Indication: PRODUCT USED FOR UNKNOWN INDICATION
     Dosage: 2 DF, BID
     Route: 048

REACTIONS (9)
  - Prurigo [Recovered/Resolved]
  - Oedema peripheral [Recovered/Resolved]
  - Lymphatic disorder [Recovered/Resolved]
  - Peripheral venous disease [Recovered/Resolved]
  - Cardiac murmur [Recovered/Resolved]
  - Erythema multiforme [Recovered/Resolved]
  - Stasis dermatitis [Recovered/Resolved]
  - Rash maculo-papular [Recovered/Resolved]
  - Psoriasis [Recovered/Resolved]

NARRATIVE: CASE EVENT DATE: 20070926
